FAERS Safety Report 6622365-2 (Version None)
Quarter: 2010Q1

REPORT INFORMATION
  Report Type: 
  Country: None (occurrence: None)
  Receive Date: 20100310
  Receipt Date: 20100126
  Transmission Date: 20100710
  Serious: No
  Sender: FDA-Public Use
  Company Number: US-BIOGENIDEC-2010BI002612

PATIENT
  Age: 48 Year
  Sex: Female

DRUGS (2)
  1. AVONEX [Suspect]
     Indication: MULTIPLE SCLEROSIS
     Route: 030
     Dates: start: 20000101
  2. AVONEX [Suspect]
     Route: 030

REACTIONS (11)
  - BACK PAIN [None]
  - FATIGUE [None]
  - FEELING JITTERY [None]
  - GAIT DISTURBANCE [None]
  - GLARE [None]
  - INFLUENZA LIKE ILLNESS [None]
  - INSOMNIA [None]
  - MULTIPLE SCLEROSIS [None]
  - MULTIPLE SCLEROSIS RELAPSE [None]
  - MUSCULOSKELETAL DISORDER [None]
  - PRURITUS [None]
